FAERS Safety Report 4320801-8 (Version None)
Quarter: 2004Q1

REPORT INFORMATION
  Report Type: 
  Country: None (occurrence: None)
  Receive Date: 20040308
  Receipt Date: 20040304
  Transmission Date: 20041129
  Serious: Yes (Hospitalization)
  Sender: FDA-Public Use
  Company Number: 235730

PATIENT

DRUGS (1)
  1. ACTRAPID PENFILL HM(GE) 3ML (ACTRAPID PENFILL HM(GE) 3ML) SOLUTION FOR [Suspect]
     Indication: DIABETES MELLITUS
     Dosage: 102 IU, QD, SUBCUTANEOUS
     Route: 058
     Dates: start: 20030606

REACTIONS (11)
  - BLOOD BILIRUBIN INCREASED [None]
  - CYANOSIS NEONATAL [None]
  - HYPOGLYCAEMIA NEONATAL [None]
  - INFUSION RELATED REACTION [None]
  - INFUSION SITE REACTION [None]
  - JAUNDICE NEONATAL [None]
  - MATERNAL DRUGS AFFECTING FOETUS [None]
  - NECROSIS [None]
  - NEONATAL APNOEIC ATTACK [None]
  - NEONATAL DISORDER [None]
  - PREMATURE RUPTURE OF MEMBRANES [None]
